FAERS Safety Report 4648989-X (Version None)
Quarter: 2005Q2

REPORT INFORMATION
  Report Type: 
  Country: None (occurrence: None)
  Receive Date: 20050429
  Receipt Date: 20041207
  Transmission Date: 20051028
  Serious: Yes (Hospitalization)
  Sender: FDA-Public Use
  Company Number: JP-ROCHE-388323

PATIENT
  Age: 69 Year
  Sex: Male

DRUGS (14)
  1. PANALDINE [Suspect]
     Indication: STENT PLACEMENT
     Route: 048
     Dates: start: 20041004, end: 20041203
  2. GENTAMICIN [Concomitant]
     Route: 042
     Dates: start: 20041028
  3. PENICILLIN G [Concomitant]
     Route: 042
     Dates: start: 20041028, end: 20041127
  4. ASPIRIN [Concomitant]
     Route: 048
     Dates: start: 20041004
  5. AMLODIN [Concomitant]
     Route: 048
     Dates: start: 20041004
  6. EUGLUCON [Concomitant]
     Route: 048
     Dates: start: 20041004
  7. BASEN [Concomitant]
     Dosage: BASEN OD.
     Route: 048
     Dates: start: 20041004
  8. ACTOS [Concomitant]
     Route: 048
     Dates: start: 20041004
  9. SELECTOL [Concomitant]
     Route: 048
     Dates: start: 20041004
  10. LENDORM [Concomitant]
     Route: 048
     Dates: start: 20041004
  11. UNASYN [Concomitant]
     Route: 042
     Dates: start: 20041020, end: 20041022
  12. CARBENIN [Concomitant]
     Route: 042
     Dates: start: 20041023, end: 20041027
  13. BUP-4 [Concomitant]
     Route: 048
     Dates: start: 20041028
  14. HARNAL [Concomitant]
     Route: 048
     Dates: start: 20041028

REACTIONS (5)
  - BLOOD PRESSURE SYSTOLIC INCREASED [None]
  - CARDIAC VALVE VEGETATION [None]
  - ENDOCARDITIS [None]
  - EOSINOPHIL COUNT INCREASED [None]
  - POST PROCEDURAL COMPLICATION [None]
